FAERS Safety Report 8836646 (Version 1)
Quarter: 2012Q4

REPORT INFORMATION
  Report Type: Spontaneous
  Country: FR (occurrence: None)
  Receive Date: 20121009
  Receipt Date: 20121009
  Transmission Date: 20130627
  Serious: Yes (Other)
  Sender: FDA-Public Use
  Company Number: FR-MACLEODS PHARMA-000018

PATIENT
  Age: 4 Year
  Sex: Male

DRUGS (3)
  1. AMLODIPINE [Suspect]
     Indication: HYPERTENSION
  2. TACROLIMUS [Suspect]
     Indication: IMMUNOSUPPRESSION
  3. ENALAPRIL (ENALAPRIL) [Concomitant]

REACTIONS (5)
  - Drug interaction [None]
  - Immunosuppressant drug level increased [None]
  - Blood creatinine increased [None]
  - Nephropathy toxic [None]
  - Hypertension [None]
